FAERS Safety Report 11818661 (Version 1)
Quarter: 2015Q4

REPORT INFORMATION
  Report Type: Spontaneous
  Country: US (occurrence: None)
  Receive Date: 20151209
  Receipt Date: 20151209
  Transmission Date: 20160305
  Serious: Yes (Hospitalization)
  Sender: FDA-Public Use
  Company Number: None

PATIENT
  Age: 66 Year
  Sex: Male
  Weight: 99 kg

DRUGS (14)
  1. FENTANYL. [Suspect]
     Active Substance: FENTANYL
     Indication: PAIN
     Route: 042
  2. PROPOFOL. [Concomitant]
     Active Substance: PROPOFOL
  3. FENTANYL. [Suspect]
     Active Substance: FENTANYL
     Indication: PREOPERATIVE CARE
     Route: 042
  4. CA GLUC [Concomitant]
  5. AFRIN [Concomitant]
     Active Substance: OXYMETAZOLINE
  6. ROCURONIUM [Concomitant]
     Active Substance: ROCURONIUM BROMIDE
  7. MIDAZOLAM [Suspect]
     Active Substance: MIDAZOLAM\MIDAZOLAM HYDROCHLORIDE
     Indication: ANAESTHESIA
     Route: 042
  8. CEFAZOLIN [Concomitant]
     Active Substance: CEFAZOLIN
  9. MIDAZOLAM [Suspect]
     Active Substance: MIDAZOLAM\MIDAZOLAM HYDROCHLORIDE
     Indication: PREOPERATIVE CARE
     Route: 042
  10. LIDOCAINE. [Concomitant]
     Active Substance: LIDOCAINE
  11. ZORANE [Concomitant]
     Active Substance: ETHINYL ESTRADIOL\NORETHINDRONE ACETATE
  12. DECADRON [Concomitant]
     Active Substance: DEXAMETHASONE
  13. PHENYEPRINE [Concomitant]
  14. ANECTINE [Concomitant]
     Active Substance: SUCCINYLCHOLINE CHLORIDE

REACTIONS (3)
  - Atelectasis [None]
  - Hypoxia [None]
  - Respiratory failure [None]

NARRATIVE: CASE EVENT DATE: 20150318
